FAERS Safety Report 21648098 (Version 1)
Quarter: 2022Q4

REPORT INFORMATION
  Report Type: Spontaneous
  Country: US (occurrence: US)
  Receive Date: 20221128
  Receipt Date: 20221128
  Transmission Date: 20230112
  Serious: No
  Sender: FDA-Public Use
  Company Number: US-ABBVIE-4180147

PATIENT
  Age: 30 Year
  Sex: Female
  Weight: 104.32 kg

DRUGS (4)
  1. HUMIRA [Suspect]
     Active Substance: ADALIMUMAB
     Indication: Rosacea
     Dosage: ONE IN ONCE
     Route: 058
     Dates: start: 20221027, end: 20221027
  2. PFIZER-BIONTECH COVID-19 VACCINE [Concomitant]
     Active Substance: TOZINAMERAN
     Indication: COVID-19 immunisation
     Dosage: PFIZER, ONE IN ONCE
     Route: 030
     Dates: start: 202105, end: 202105
  3. PFIZER-BIONTECH COVID-19 VACCINE [Concomitant]
     Active Substance: TOZINAMERAN
     Indication: COVID-19 immunisation
     Dosage: PFIZER, ONE IN ONCE
     Route: 030
     Dates: start: 2021, end: 2021
  4. PREDNISONE [Concomitant]
     Active Substance: PREDNISONE
     Indication: Rosacea

REACTIONS (2)
  - Off label use [Not Recovered/Not Resolved]
  - Device issue [Not Recovered/Not Resolved]

NARRATIVE: CASE EVENT DATE: 20221027
